FAERS Safety Report 9626626 (Version 2)
Quarter: 2013Q4

REPORT INFORMATION
  Report Type: Spontaneous
  Country: KR (occurrence: KR)
  Receive Date: 20131016
  Receipt Date: 20131021
  Transmission Date: 20140711
  Serious: Yes (Death)
  Sender: FDA-Public Use
  Company Number: KR-PFIZER INC-2013291547

PATIENT
  Age: 69 Year
  Sex: Female

DRUGS (3)
  1. VANCOMYCIN HCL [Suspect]
     Indication: STAPHYLOCOCCUS TEST POSITIVE
     Dosage: UNK
  2. LINEZOLID [Suspect]
     Indication: STAPHYLOCOCCUS TEST POSITIVE
     Dosage: UNK
  3. IMIPENEM [Concomitant]
     Dosage: UNK

REACTIONS (2)
  - Sepsis [Fatal]
  - Drug ineffective [Unknown]
